FAERS Safety Report 5912938-4 (Version None)
Quarter: 2008Q4

REPORT INFORMATION
  Report Type: 
  Country: None (occurrence: None)
  Receive Date: 20081008
  Receipt Date: 20080926
  Transmission Date: 20090506
  Serious: Yes (Hospitalization, Other)
  Sender: FDA-Public Use
  Company Number: US-PFIZER INC-2008065583

PATIENT
  Sex: Male

DRUGS (3)
  1. DILANTIN [Suspect]
     Indication: CONVULSION
     Route: 048
     Dates: start: 20000101
  2. DILANTIN [Suspect]
     Route: 051
  3. AZTREONAM [Suspect]
     Route: 051

REACTIONS (3)
  - SEPSIS [None]
  - STEVENS-JOHNSON SYNDROME [None]
  - TOXIC EPIDERMAL NECROLYSIS [None]
